FAERS Safety Report 16995568 (Version 2)
Quarter: 2019Q4

REPORT INFORMATION
  Report Type: Report from Study
  Country: None (occurrence: US)
  Receive Date: 20191105
  Receipt Date: 20191119
  Transmission Date: 20200122
  Serious: Yes (Hospitalization)
  Sender: FDA-Public Use
  Company Number: US-ABBVIE-19K-163-2989112-00

PATIENT
  Sex: Male

DRUGS (1)
  1. VENCLEXTA [Suspect]
     Active Substance: VENETOCLAX
     Indication: CHRONIC LYMPHOCYTIC LEUKAEMIA
     Route: 048
     Dates: start: 20191024, end: 2019

REACTIONS (8)
  - White blood cell count decreased [Recovering/Resolving]
  - Pain in extremity [Recovering/Resolving]
  - Off label use [Unknown]
  - Transfusion [Recovering/Resolving]
  - Platelet transfusion [Recovering/Resolving]
  - Oedema [Recovering/Resolving]
  - Pneumonia [Recovering/Resolving]
  - Decreased activity [Recovering/Resolving]

NARRATIVE: CASE EVENT DATE: 2019
